FAERS Safety Report 9524856 (Version 1)
Quarter: 2013Q1

REPORT INFORMATION
  Report Type: Spontaneous
  Country: US (occurrence: None)
  Receive Date: 20130305
  Receipt Date: 20130305
  Transmission Date: 20140127
  Serious: Yes (Hospitalization, Disabling, Other)
  Sender: FDA-Public Use
  Company Number: 163-21880-12033425

PATIENT
  Age: 85 Year
  Sex: Male

DRUGS (7)
  1. REVLIMID [Suspect]
     Indication: PLASMA CELL MYELOMA
     Route: 048
     Dates: start: 201108
  2. DEXAMETHASONE [Concomitant]
  3. NABUMETONE [Concomitant]
  4. ATENOLOL [Concomitant]
  5. LIPITOR (ATORVASTATIN) [Concomitant]
  6. METFORMIN [Concomitant]
  7. MECLIZINE [Concomitant]

REACTIONS (2)
  - Asthenia [None]
  - Pruritus generalised [None]
